FAERS Safety Report 9173541 (Version 2)
Quarter: 2013Q2

REPORT INFORMATION
  Report Type: Spontaneous
  Country: CA (occurrence: None)
  Receive Date: 20130315
  Receipt Date: 20130405
  Transmission Date: 20140414
  Serious: Yes (Other)
  Sender: FDA-Public Use
  Company Number: 2013-1085

PATIENT
  Age: 65 Year
  Sex: Female

DRUGS (8)
  1. LANREOTIDE [Suspect]
     Indication: CARCINOID TUMOUR
     Dosage: 120 MG, 1 IN 21 D, SUBCUTANEOUS
     Route: 058
     Dates: start: 20070708
  2. EFFEXOR (VENLAFAXINE) [Concomitant]
  3. HYDROCHLOROTHIAZIDE [Concomitant]
  4. RAMIPRIL [Concomitant]
  5. LIPITOR (ATORVASTATIN) [Concomitant]
  6. PREVACID (LANSOPRAZOLE) [Concomitant]
  7. VENTOLIN (SALBUTAMOL) [Concomitant]
  8. CYTOMEL (LIOTHYRONINE SODIUM) [Concomitant]

REACTIONS (6)
  - Intestinal resection [None]
  - Cholecystectomy [None]
  - Supraventricular tachycardia [None]
  - Coronary artery disease [None]
  - Arteriosclerosis coronary artery [None]
  - Coronary artery stenosis [None]
